FAERS Safety Report 22540482 (Version 1)
Quarter: 2023Q2

REPORT INFORMATION
  Report Type: Report from Study
  Country: CN (occurrence: CN)
  Receive Date: 20230609
  Receipt Date: 20230609
  Transmission Date: 20230722
  Serious: Yes (Hospitalization)
  Sender: FDA-Public Use
  Company Number: CN-HENLIUS-23CN009844

PATIENT
  Age: 49 Year
  Sex: Female
  Weight: 61 kg

DRUGS (5)
  1. DOCETAXEL [Suspect]
     Active Substance: DOCETAXEL
     Indication: HER2 positive breast cancer
     Dosage: Q3W, IV DRIP
     Route: 042
     Dates: start: 20230420, end: 20230420
  2. TRASTUZUMAB [Suspect]
     Active Substance: TRASTUZUMAB
     Indication: HER2 positive breast cancer
     Dosage: 472 MILLIGRAM, Q3W, IV DRIP
     Route: 042
     Dates: start: 20230420, end: 20230420
  3. ADEMETIONINE [Concomitant]
     Active Substance: ADEMETIONINE
     Indication: Hepatobiliary disorder prophylaxis
     Dosage: 1 GRAM, BID, ENTERIC TABLET
     Route: 048
     Dates: start: 20230423, end: 20230428
  4. GRANISETRON [Concomitant]
     Active Substance: GRANISETRON
     Indication: Hepatobiliary disorder prophylaxis
     Dosage: 1 MILLIGRAM, BID
     Route: 048
     Dates: start: 20230423, end: 20230428
  5. UNSPECIFIED INGREDIENT [Concomitant]
     Active Substance: UNSPECIFIED INGREDIENT
     Indication: Gastrointestinal disorder prophylaxis
     Dosage: 3 TABLETS, TID
     Route: 048
     Dates: start: 20230423, end: 20230428

REACTIONS (1)
  - Hepatic function abnormal [Recovered/Resolved]

NARRATIVE: CASE EVENT DATE: 20230428
